FAERS Safety Report 17338103 (Version 1)
Quarter: 2020Q1

REPORT INFORMATION
  Report Type: Spontaneous
  Country: JP (occurrence: JP)
  Receive Date: 20200129
  Receipt Date: 20200129
  Transmission Date: 20200409
  Serious: Yes (Life-Threatening, Hospitalization, Other)
  Sender: FDA-Public Use
  Company Number: JP-ACCORD-170992

PATIENT
  Age: 67 Year
  Sex: Female

DRUGS (2)
  1. CARBOPLATIN. [Suspect]
     Active Substance: CARBOPLATIN
     Indication: ENDOMETRIAL CANCER METASTATIC
  2. PACLITAXEL/PACLITAXEL LIPOSOME [Suspect]
     Active Substance: PACLITAXEL
     Indication: ENDOMETRIAL CANCER METASTATIC

REACTIONS (11)
  - Nausea [Unknown]
  - Left ventricular dysfunction [Unknown]
  - Loss of consciousness [Unknown]
  - Cardiotoxicity [Unknown]
  - Acute kidney injury [Unknown]
  - General physical health deterioration [Unknown]
  - Renal tubular dysfunction [Unknown]
  - Electrolyte imbalance [Unknown]
  - Ejection fraction decreased [Unknown]
  - Torsade de pointes [Unknown]
  - Long QT syndrome [Unknown]
